FAERS Safety Report 16014980 (Version 2)
Quarter: 2019Q1

REPORT INFORMATION
  Report Type: Report from Study
  Country: None (occurrence: CH)
  Receive Date: 20190227
  Receipt Date: 20190301
  Transmission Date: 20190418
  Serious: Yes (Hospitalization, Other)
  Sender: FDA-Public Use
  Company Number: CH-ABBVIE-19S-151-2679654-00

PATIENT
  Sex: Male

DRUGS (3)
  1. DUODOPA [Suspect]
     Active Substance: CARBIDOPA\LEVODOPA
     Dosage: MD 8ML, CRD 3ML/H, CRN 2.8ML/H, ED 1.5ML?24 H THERAPY
     Route: 050
     Dates: start: 20180420, end: 20181207
  2. DUODOPA [Suspect]
     Active Substance: CARBIDOPA\LEVODOPA
     Indication: PARKINSON^S DISEASE
     Route: 050
     Dates: start: 20141103, end: 20180420
  3. DUODOPA [Suspect]
     Active Substance: CARBIDOPA\LEVODOPA
     Dosage: MD 7ML, CRD 2.9ML/H, CRN 2.5ML/H, ED 1.5ML?24 H THERAPY
     Route: 050
     Dates: start: 20181207

REACTIONS (6)
  - Device kink [Unknown]
  - Confusional state [Unknown]
  - Fall [Unknown]
  - Loss of consciousness [Recovering/Resolving]
  - Cerebral haemorrhage [Not Recovered/Not Resolved]
  - Abnormal behaviour [Unknown]
